FAERS Safety Report 18277807 (Version 2)
Quarter: 2020Q3

REPORT INFORMATION
  Report Type: Spontaneous
  Country: FR (occurrence: FR)
  Receive Date: 20200917
  Receipt Date: 20200922
  Transmission Date: 20201103
  Serious: Yes (Hospitalization)
  Sender: FDA-Public Use
  Company Number: NVSC2020FR252076

PATIENT
  Age: 34 Year
  Sex: Male

DRUGS (3)
  1. NABUCOX [Suspect]
     Active Substance: NABUMETONE
     Indication: SUICIDE ATTEMPT
     Dosage: 14 DF, ONCE/SINGLE (14 CP)
     Route: 048
     Dates: start: 20191126
  2. AMOXICILLINE [Suspect]
     Active Substance: AMOXICILLIN
     Indication: SUICIDE ATTEMPT
     Dosage: UNK
     Route: 048
     Dates: start: 20191126
  3. LINDILANE [Suspect]
     Active Substance: ACETAMINOPHEN\CODEINE PHOSPHATE
     Indication: SUICIDE ATTEMPT
     Dosage: 14 DF, ONCE/SINGLE (14 CP)
     Route: 048
     Dates: start: 20191126

REACTIONS (5)
  - Abdominal pain upper [Recovered/Resolved]
  - Coma [Recovered/Resolved]
  - Nausea [Recovered/Resolved]
  - Toxicity to various agents [Recovered/Resolved]
  - Intentional overdose [Recovered/Resolved]

NARRATIVE: CASE EVENT DATE: 20191126
